FAERS Safety Report 5166551-X (Version None)
Quarter: 2006Q4

REPORT INFORMATION
  Report Type: 
  Country: None (occurrence: None)
  Receive Date: 20061129
  Receipt Date: 20061120
  Transmission Date: 20070319
  Serious: No
  Sender: FDA-Public Use
  Company Number: E2020-00657-SPO-FR

PATIENT
  Age: 82 Year
  Sex: Female
  Weight: 95 kg

DRUGS (2)
  1. ARICEPT [Suspect]
     Indication: DEMENTIA ALZHEIMER'S TYPE
     Dosage: 10MG, ORAL
     Route: 048
     Dates: start: 20060701, end: 20060806
  2. TENORETIC 100 [Suspect]
     Indication: HYPERTENSION
     Dosage: UNKNOWN; ORAL
     Route: 048
     Dates: end: 20060806

REACTIONS (10)
  - APATHY [None]
  - BALANCE DISORDER [None]
  - CONFUSIONAL STATE [None]
  - DEHYDRATION [None]
  - DIARRHOEA [None]
  - DISTURBANCE IN ATTENTION [None]
  - DRUG INTERACTION [None]
  - FATIGUE [None]
  - HYPOKALAEMIA [None]
  - ORTHOSTATIC HYPOTENSION [None]
